FAERS Safety Report 7375687-4 (Version None)
Quarter: 2011Q1

REPORT INFORMATION
  Report Type: 
  Country: None (occurrence: None)
  Receive Date: 20110317
  Receipt Date: 20110304
  Transmission Date: 20110831
  Serious: Yes (Other)
  Sender: FDA-Public Use
  Company Number: 1000017193

PATIENT
  Age: 62 Year
  Sex: Male
  Weight: 60 kg

DRUGS (3)
  1. ESCITALOPRAM [Suspect]
     Indication: PHOBIA
     Dosage: 10 MG (10 MG,  1 IN 1 D), ORAL
     Route: 048
     Dates: start: 20100622, end: 20101101
  2. ESCITALOPRAM [Suspect]
     Indication: ANXIETY
     Dosage: 10 MG (10 MG,  1 IN 1 D), ORAL
     Route: 048
     Dates: start: 20100622, end: 20101101
  3. ATARAX [Concomitant]

REACTIONS (4)
  - VIOLENCE-RELATED SYMPTOM [None]
  - NIGHTMARE [None]
  - ABNORMAL SLEEP-RELATED EVENT [None]
  - AGITATION [None]
